FAERS Safety Report 9154130 (Version 2)
Quarter: 2013Q2

REPORT INFORMATION
  Report Type: Spontaneous
  Country: US (occurrence: US)
  Receive Date: 20130311
  Receipt Date: 20130416
  Transmission Date: 20140414
  Serious: Yes (Life-Threatening, Congenital Anomaly, Other)
  Sender: FDA-Public Use
  Company Number: US-PFIZER INC-2013080385

PATIENT
  Sex: Male

DRUGS (6)
  1. ZOLOFT [Suspect]
     Indication: DEPRESSION
     Dosage: UNK
     Route: 064
     Dates: start: 2000, end: 2004
  2. PRENATAL VITAMINS [Concomitant]
     Dosage: UNK
     Route: 064
  3. ADVIL [Concomitant]
     Dosage: UNK
     Route: 064
  4. TYLENOL [Concomitant]
     Dosage: UNK
     Route: 064
  5. SUDAFED [Concomitant]
     Dosage: UNK
     Route: 064
  6. PROGESTERONE [Concomitant]
     Dosage: UNK
     Route: 064

REACTIONS (2)
  - Maternal exposure during pregnancy [Unknown]
  - Craniosynostosis [Unknown]
